FAERS Safety Report 9197781 (Version 2)
Quarter: 2013Q2

REPORT INFORMATION
  Report Type: Spontaneous
  Country: DK (occurrence: IT)
  Receive Date: 20130328
  Receipt Date: 20130416
  Transmission Date: 20140414
  Serious: Yes (Hospitalization)
  Sender: FDA-Public Use
  Company Number: IT-FRI-1000043789

PATIENT
  Age: 58 Year
  Sex: Female

DRUGS (4)
  1. CITALOPRAM ORAL SOLUTION [Suspect]
     Indication: BIPOLAR DISORDER
     Dosage: 300 MG (HALF BOTTLE)
     Route: 048
     Dates: start: 20121211, end: 20121211
  2. XANAX [Suspect]
     Indication: BIPOLAR DISORDER
     Dosage: 15 MG
     Route: 048
     Dates: start: 20121211, end: 20121211
  3. SEROQUEL [Suspect]
     Indication: BIPOLAR DISORDER
     Dosage: 1500 MG
     Route: 048
     Dates: start: 20121211, end: 20121211
  4. SAMYR [Suspect]
     Indication: BIPOLAR DISORDER
     Dosage: 4000 MG
     Route: 048
     Dates: start: 20121211, end: 20121211

REACTIONS (4)
  - Suicide attempt [Recovering/Resolving]
  - Loss of consciousness [Recovering/Resolving]
  - Off label use [Recovering/Resolving]
  - Overdose [Unknown]
